FAERS Safety Report 5292695-8 (Version None)
Quarter: 2007Q2

REPORT INFORMATION
  Report Type: 
  Country: None (occurrence: None)
  Receive Date: 20070404
  Receipt Date: 20070323
  Transmission Date: 20071010
  Serious: Yes (Hospitalization)
  Sender: FDA-Public Use
  Company Number: 2007AL001243

PATIENT
  Age: 26 Year
  Sex: Male

DRUGS (2)
  1. CARBAMAZEPINE [Suspect]
     Dosage: 3200 MG; X1; PO
     Route: 048
  2. INSULIN [Concomitant]

REACTIONS (16)
  - BLOOD POTASSIUM DECREASED [None]
  - BRUGADA SYNDROME [None]
  - CARDIAC FAILURE [None]
  - CARDIOGENIC SHOCK [None]
  - COMA [None]
  - ELECTROENCEPHALOGRAM ABNORMAL [None]
  - ELECTROMECHANICAL DISSOCIATION [None]
  - HYPOREFLEXIA [None]
  - HYPOTHERMIA [None]
  - HYPOTONIA [None]
  - MYOCARDIAL INFARCTION [None]
  - OVERDOSE [None]
  - PO2 INCREASED [None]
  - PROTHROMBIN TIME SHORTENED [None]
  - RENAL FAILURE ACUTE [None]
  - SUICIDE ATTEMPT [None]
